FAERS Safety Report 20720327 (Version 20)
Quarter: 2023Q1

REPORT INFORMATION
  Report Type: Report from Study
  Country: US (occurrence: US)
  Receive Date: 20220418
  Receipt Date: 20230302
  Transmission Date: 20230417
  Serious: No
  Sender: FDA-Public Use
  Company Number: US-NOVARTISTESTPH-NVSC2022US086617

PATIENT
  Age: 66 Year
  Sex: Female

DRUGS (8)
  1. COSENTYX [Suspect]
     Active Substance: SECUKINUMAB
     Indication: Psoriasis
     Dosage: 300 MG, QW
     Route: 058
  2. COSENTYX [Suspect]
     Active Substance: SECUKINUMAB
     Indication: Psoriatic arthropathy
     Dosage: 300 MG, QMO
     Route: 058
     Dates: start: 20220329
  3. COSENTYX [Suspect]
     Active Substance: SECUKINUMAB
     Indication: Pruritus
     Dosage: 300 MG, QMO
     Route: 058
  4. COSENTYX [Suspect]
     Active Substance: SECUKINUMAB
     Dosage: UNK
     Route: 065
  5. COSENTYX [Suspect]
     Active Substance: SECUKINUMAB
     Dosage: 300 MG, QW (ONCE A WEEK FOR 5 WEEKS AND THEN Q4 WEEKS)
     Route: 058
  6. COSENTYX [Suspect]
     Active Substance: SECUKINUMAB
     Dosage: 300 MG, QMO
     Route: 058
  7. COSENTYX [Suspect]
     Active Substance: SECUKINUMAB
     Dosage: UNK
     Route: 065
  8. COSENTYX [Suspect]
     Active Substance: SECUKINUMAB
     Dosage: 300 MG, QMO
     Route: 058
     Dates: start: 20220322

REACTIONS (19)
  - Arthritis [Not Recovered/Not Resolved]
  - Tremor [Unknown]
  - Skin swelling [Unknown]
  - Arthralgia [Unknown]
  - Sciatica [Unknown]
  - Back pain [Unknown]
  - Intervertebral disc protrusion [Unknown]
  - Pain [Unknown]
  - Weight decreased [Unknown]
  - Bone disorder [Unknown]
  - Asthenia [Unknown]
  - Contusion [Unknown]
  - Pruritus [Unknown]
  - Fall [Unknown]
  - Ankle fracture [Unknown]
  - Foot fracture [Unknown]
  - Lower limb fracture [Unknown]
  - Psoriasis [Unknown]
  - Therapeutic response shortened [Recovering/Resolving]

NARRATIVE: CASE EVENT DATE: 20220512
